FAERS Safety Report 13023004 (Version 1)
Quarter: 2016Q4

REPORT INFORMATION
  Report Type: Report from Study
  Country: CA (occurrence: CA)
  Receive Date: 20161213
  Receipt Date: 20161213
  Transmission Date: 20170207
  Serious: No
  Sender: FDA-Public Use
  Company Number: CA-JNJFOC-20161209774

PATIENT
  Age: 33 Year
  Sex: Male
  Weight: 108.86 kg

DRUGS (1)
  1. STELARA [Suspect]
     Active Substance: USTEKINUMAB
     Indication: PSORIASIS
     Route: 058
     Dates: start: 20151005, end: 20161004

REACTIONS (2)
  - Swelling face [Unknown]
  - Tooth fracture [Unknown]

NARRATIVE: CASE EVENT DATE: 201610
